FAERS Safety Report 7517998-5 (Version None)
Quarter: 2011Q2

REPORT INFORMATION
  Report Type: 
  Country: None (occurrence: None)
  Receive Date: 20110602
  Receipt Date: 20110518
  Transmission Date: 20111010
  Serious: Yes (Death, Life-Threatening, Hospitalization)
  Sender: FDA-Public Use
  Company Number: GB-JNJFOC-20101006146

PATIENT
  Sex: Female
  Weight: 88 kg

DRUGS (2)
  1. METHOTREXATE [Concomitant]
     Dates: start: 20020902
  2. INFLIXIMAB, RECOMBINANT [Suspect]
     Indication: RHEUMATOID ARTHRITIS
     Route: 042
     Dates: start: 20051128, end: 20090423

REACTIONS (5)
  - ATRIAL FIBRILLATION [None]
  - CEREBROVASCULAR ACCIDENT [None]
  - ATRIAL FLUTTER [None]
  - PNEUMONIA ASPIRATION [None]
  - DIABETES MELLITUS [None]
